FAERS Safety Report 5084673-9 (Version None)
Quarter: 2006Q3

REPORT INFORMATION
  Report Type: 
  Country: None (occurrence: None)
  Receive Date: 20060818
  Receipt Date: 20060818
  Transmission Date: 20061208
  Serious: No
  Sender: FDA-Public Use
  Company Number: None

PATIENT
  Sex: Male
  Weight: 104.3273 kg

DRUGS (2)
  1. ZETIA [Suspect]
     Indication: HYPERLIPIDAEMIA
     Dosage: ZETIA   10MG    PO
     Route: 048
     Dates: start: 20051003, end: 20051007
  2. TEMAZEPAM [Concomitant]

REACTIONS (1)
  - RHABDOMYOLYSIS [None]
